FAERS Safety Report 18216328 (Version 1)
Quarter: 2020Q3

REPORT INFORMATION
  Report Type: Spontaneous
  Country: PT (occurrence: PT)
  Receive Date: 20200901
  Receipt Date: 20200901
  Transmission Date: 20201103
  Serious: Yes (Other)
  Sender: FDA-Public Use
  Company Number: PT-MSNLABS-2020MSNSPO00327

PATIENT

DRUGS (1)
  1. PREGABALIN CAPSULES 300 MG [Suspect]
     Active Substance: PREGABALIN
     Indication: NEURALGIA
     Dosage: DESCONHECIDA
     Route: 048
     Dates: start: 20200613, end: 20200629

REACTIONS (1)
  - Drug-induced liver injury [None]

NARRATIVE: CASE EVENT DATE: 20200615
